FAERS Safety Report 20024997 (Version 3)
Quarter: 2021Q4

REPORT INFORMATION
  Report Type: Spontaneous
  Country: GR (occurrence: None)
  Receive Date: 20211102
  Receipt Date: 20211110
  Transmission Date: 20220303
  Serious: Yes (Other)
  Sender: FDA-Public Use
  Company Number: GR-ROCHE-2946223

PATIENT
  Sex: Female

DRUGS (12)
  1. RITUXIMAB [Suspect]
     Active Substance: RITUXIMAB
     Indication: Product used for unknown indication
     Route: 065
  2. CISPLATIN [Suspect]
     Active Substance: CISPLATIN
     Indication: Product used for unknown indication
     Route: 065
  3. CISPLATIN [Suspect]
     Active Substance: CISPLATIN
     Route: 065
     Dates: start: 20210712, end: 20210801
  4. CYTARABINE [Suspect]
     Active Substance: CYTARABINE
     Indication: Product used for unknown indication
     Route: 065
  5. CYTARABINE [Suspect]
     Active Substance: CYTARABINE
     Route: 065
     Dates: start: 20210712, end: 20210801
  6. VINCRISTINE [Suspect]
     Active Substance: VINCRISTINE
     Indication: Product used for unknown indication
     Route: 065
  7. VINCRISTINE [Suspect]
     Active Substance: VINCRISTINE
     Route: 065
     Dates: start: 20210423, end: 20210501
  8. DEXAMETHASONE [Suspect]
     Active Substance: DEXAMETHASONE
     Indication: Product used for unknown indication
     Route: 065
  9. DEXAMETHASONE [Suspect]
     Active Substance: DEXAMETHASONE
     Route: 065
     Dates: start: 20210423, end: 20210501
  10. DEXAMETHASONE [Suspect]
     Active Substance: DEXAMETHASONE
     Route: 065
     Dates: start: 20210712, end: 20210801
  11. CYCLOPHOSPHAMIDE [Suspect]
     Active Substance: CYCLOPHOSPHAMIDE
     Indication: Product used for unknown indication
     Route: 065
  12. CYCLOPHOSPHAMIDE [Suspect]
     Active Substance: CYCLOPHOSPHAMIDE
     Route: 065
     Dates: start: 20210423, end: 20210501

REACTIONS (6)
  - Disease progression [Unknown]
  - Lymphocyte count decreased [Unknown]
  - Blood lactate dehydrogenase increased [Unknown]
  - Gamma-glutamyltransferase increased [Unknown]
  - Red blood cell count decreased [Unknown]
  - Platelet count decreased [Unknown]
